FAERS Safety Report 6147271-1 (Version None)
Quarter: 2009Q2

REPORT INFORMATION
  Report Type: 
  Country: None (occurrence: None)
  Receive Date: 20090408
  Receipt Date: 20090402
  Transmission Date: 20091009
  Serious: Yes (Hospitalization)
  Sender: FDA-Public Use
  Company Number: DE-JNJFOC-20090400900

PATIENT
  Age: 35 Year
  Sex: Female

DRUGS (1)
  1. TAVANIC [Suspect]
     Indication: URINARY TRACT INFECTION
     Dosage: FILM COATED TABLETS
     Route: 048

REACTIONS (2)
  - ECZEMA [None]
  - SHOCK [None]
